FAERS Safety Report 8345594-9 (Version None)
Quarter: 2012Q2

REPORT INFORMATION
  Report Type: 
  Country: None (occurrence: None)
  Receive Date: 20120508
  Receipt Date: 20120507
  Transmission Date: 20120825
  Serious: Yes (Life-Threatening)
  Sender: FDA-Public Use
  Company Number: DK-ABBOTT-11P-044-0884313-00

PATIENT
  Sex: Male

DRUGS (2)
  1. VALPROIC ACID [Suspect]
     Indication: MATERNAL EXPOSURE TIMING UNSPECIFIED
     Route: 064
  2. VALPROATE SODIUM [Suspect]
     Indication: MATERNAL EXPOSURE TIMING UNSPECIFIED
     Route: 064

REACTIONS (6)
  - LUMBAR PUNCTURE ABNORMAL [None]
  - MUSCLE SPASMS [None]
  - FOETAL EXPOSURE DURING PREGNANCY [None]
  - NUCLEAR MAGNETIC RESONANCE IMAGING BRAIN ABNORMAL [None]
  - CEREBELLAR HAEMORRHAGE [None]
  - DECREASED APPETITE [None]
